FAERS Safety Report 7407676-5 (Version None)
Quarter: 2011Q2

REPORT INFORMATION
  Report Type: 
  Country: None (occurrence: None)
  Receive Date: 20110412
  Receipt Date: 20101202
  Transmission Date: 20111010
  Serious: Yes (Death)
  Sender: FDA-Public Use
  Company Number: JP-BAYER-200914887BYL

PATIENT
  Age: 74 Year
  Sex: Male

DRUGS (2)
  1. NEXAVAR [Suspect]
     Indication: RENAL CELL CARCINOMA
  2. NEXAVAR [Suspect]
     Indication: METASTATIC RENAL CELL CARCINOMA
     Dosage: 400 MG, BID
     Route: 048
     Dates: start: 20091110, end: 20100308

REACTIONS (5)
  - ATRIAL FIBRILLATION [None]
  - PLATELET COUNT DECREASED [None]
  - ASCITES [None]
  - DECREASED APPETITE [None]
  - METASTATIC RENAL CELL CARCINOMA [None]
